FAERS Safety Report 5722971-3 (Version None)
Quarter: 2008Q2

REPORT INFORMATION
  Report Type: 
  Country: None (occurrence: None)
  Receive Date: 20080430
  Receipt Date: 20080417
  Transmission Date: 20081010
  Serious: No
  Sender: FDA-Public Use
  Company Number: US-BAYER-200820335NA

PATIENT
  Age: 34 Year
  Sex: Female
  Weight: 63 kg

DRUGS (1)
  1. YAZ [Suspect]
     Indication: ACNE
     Dates: start: 20080328

REACTIONS (3)
  - BREAST ENLARGEMENT [None]
  - BREAST INDURATION [None]
  - WEIGHT INCREASED [None]
